FAERS Safety Report 16311712 (Version 1)
Quarter: 2019Q2

REPORT INFORMATION
  Report Type: Report from Study
  Country: FR (occurrence: FR)
  Receive Date: 20190514
  Receipt Date: 20190514
  Transmission Date: 20190711
  Serious: Yes (Death, Other)
  Sender: FDA-Public Use
  Company Number: FR-JAZZ-2019-FR-000893

PATIENT

DRUGS (1)
  1. DEFITELIO [Suspect]
     Active Substance: DEFIBROTIDE SODIUM
     Indication: PROPHYLAXIS
     Dosage: 21.5 MG/KG, QD
     Dates: start: 20160331, end: 20160421

REACTIONS (5)
  - Acute lymphocytic leukaemia recurrent [Unknown]
  - Neurological decompensation [Fatal]
  - Diarrhoea haemorrhagic [Unknown]
  - Thrombosis [Unknown]
  - General physical health deterioration [Fatal]

NARRATIVE: CASE EVENT DATE: 20160706
